FAERS Safety Report 23643103 (Version 4)
Quarter: 2024Q2

REPORT INFORMATION
  Report Type: Spontaneous
  Country: US (occurrence: US)
  Receive Date: 20240318
  Receipt Date: 20240423
  Transmission Date: 20240716
  Serious: Yes (Other)
  Sender: FDA-Public Use
  Company Number: US-PFIZER INC-202400060273

PATIENT
  Age: 77 Year
  Sex: Female

DRUGS (1)
  1. ESTRING [Suspect]
     Active Substance: ESTRADIOL
     Indication: Vulvovaginal dryness
     Dosage: UNK
     Route: 067
     Dates: start: 20021212

REACTIONS (4)
  - Vulvovaginal dryness [Unknown]
  - Vulvovaginal discomfort [Unknown]
  - Off label use [Unknown]
  - Contraindicated product administered [Unknown]
